FAERS Safety Report 7310274-5 (Version None)
Quarter: 2011Q1

REPORT INFORMATION
  Report Type: 
  Country: None (occurrence: None)
  Receive Date: 20110224
  Receipt Date: 20110216
  Transmission Date: 20110831
  Serious: Yes (Other)
  Sender: FDA-Public Use
  Company Number: US-US-EMD SERONO, INC.-7042908

PATIENT
  Sex: Female
  Weight: 43 kg

DRUGS (3)
  1. OMEPRAZOLE [Concomitant]
  2. REBIF [Suspect]
     Indication: PRODUCT USED FOR UNKNOWN INDICATION
     Route: 058
     Dates: start: 20070109, end: 20101101
  3. REBIF [Suspect]
     Route: 058
     Dates: start: 20101101

REACTIONS (5)
  - HEPATIC ENZYME INCREASED [None]
  - CERVICAL DYSPLASIA [None]
  - INJECTION SITE DISCOMFORT [None]
  - PYREXIA [None]
  - HYPERHIDROSIS [None]
